FAERS Safety Report 23511016 (Version 1)
Quarter: 2024Q1

REPORT INFORMATION
  Report Type: Report from Study
  Country: US (occurrence: US)
  Receive Date: 20240212
  Receipt Date: 20240212
  Transmission Date: 20240410
  Serious: Yes (Hospitalization, Other)
  Sender: FDA-Public Use
  Company Number: US-ABBVIE-5630117

PATIENT
  Sex: Male

DRUGS (1)
  1. UBRELVY [Suspect]
     Active Substance: UBROGEPANT
     Indication: Product used for unknown indication
     Dosage: UBROGEPANT 50MG
     Route: 048
     Dates: start: 20230201, end: 20240205

REACTIONS (4)
  - Infection [Recovered/Resolved]
  - Unevaluable event [Unknown]
  - Migraine [Not Recovered/Not Resolved]
  - Renal disorder [Recovered/Resolved]
